FAERS Safety Report 16867122 (Version 3)
Quarter: 2019Q4

REPORT INFORMATION
  Report Type: Report from Study
  Country: US (occurrence: US)
  Receive Date: 20190930
  Receipt Date: 20191204
  Transmission Date: 20200122
  Serious: Yes (Other)
  Sender: FDA-Public Use
  Company Number: PHEH2019US039951

PATIENT
  Age: 68 Year
  Sex: Female
  Weight: 67.13 kg

DRUGS (2)
  1. MAYZENT [Suspect]
     Active Substance: SIPONIMOD
     Indication: PRODUCT USED FOR UNKNOWN INDICATION
     Dosage: 2 MG, QD
     Route: 048
     Dates: start: 20190827, end: 20190915
  2. AMPYRA [Concomitant]
     Active Substance: DALFAMPRIDINE
     Indication: PRODUCT USED FOR UNKNOWN INDICATION
     Dosage: 10 MG, QD
     Route: 065

REACTIONS (8)
  - Dizziness [Unknown]
  - Bradyarrhythmia [Unknown]
  - Fatigue [Recovering/Resolving]
  - Asthenia [Unknown]
  - Lethargy [Recovering/Resolving]
  - Atrioventricular block first degree [Unknown]
  - Malaise [Unknown]
  - Bradycardia [Unknown]

NARRATIVE: CASE EVENT DATE: 20190905
